FAERS Safety Report 8838766 (Version 1)
Quarter: 2012Q4

REPORT INFORMATION
  Report Type: 
  Country: US (occurrence: US)
  Receive Date: 20121013
  Receipt Date: 20121013
  Transmission Date: 20130627
  Serious: Yes (Hospitalization, Other)
  Sender: FDA-Public Use
  Company Number: US-ROXANE LABORATORIES, INC.-2012-RO-01978RO

PATIENT
  Age: 34 Year
  Sex: Male

DRUGS (22)
  1. FLUCONAZOLE [Suspect]
     Indication: ANTIFUNGAL TREATMENT
     Dosage: 100 mg
     Route: 048
  2. FLUCONAZOLE [Suspect]
     Dosage: 200 mg
     Route: 042
  3. FLUCONAZOLE [Suspect]
     Dosage: 400 mg
     Route: 048
  4. FLUCONAZOLE [Suspect]
     Dosage: 800 mg
     Route: 048
  5. ALPRAZOLAM [Suspect]
     Dosage: 0.25 mg
     Route: 048
  6. LIDOCAINE [Suspect]
     Dosage: 50 ml
     Route: 048
  7. MORPHINE [Suspect]
     Indication: PAIN
     Dosage: 40 mg
     Route: 048
  8. MORPHINE [Suspect]
     Route: 042
  9. RIFABUTIN [Suspect]
     Route: 048
  10. TENOFOVIR DF + EMTRICITABINE [Suspect]
     Route: 048
  11. ATAZANAVIR [Suspect]
     Dosage: 300 mg
     Route: 048
  12. RITONAVIR [Suspect]
     Dosage: 100 mg
     Route: 048
  13. ETHAMBUTOL [Suspect]
     Dosage: 800 mg
     Route: 048
  14. MOXIFLOXACIN [Suspect]
     Dosage: 400 mg
     Route: 048
  15. AZITHROMYCIN [Suspect]
     Dosage: 500 mg
     Route: 048
  16. VALGANCICLOVIR [Suspect]
     Indication: CYTOMEGALOVIRUS CHORIORETINITIS
     Dosage: 1800 mg
     Route: 048
  17. VALGANCICLOVIR [Suspect]
     Dosage: 900 mg
     Route: 048
  18. FILGRASTIM [Suspect]
     Route: 058
  19. CHOLECALCIFEROL [Suspect]
     Route: 048
  20. ACETAMINOPHEN/HYDROCODONE [Suspect]
     Route: 048
  21. FAMOTIDINE [Suspect]
     Dosage: 40 mg
     Route: 048
  22. HYDROMORPHONE [Suspect]
     Indication: PAIN
     Route: 042

REACTIONS (3)
  - Thrombocytopenia [Recovered/Resolved]
  - Hiatus hernia [Unknown]
  - Iron deficiency anaemia [Unknown]
